FAERS Safety Report 8937190 (Version 1)
Quarter: 2012Q4

REPORT INFORMATION
  Report Type: Spontaneous
  Country: US (occurrence: None)
  Receive Date: 20121128
  Receipt Date: 20121128
  Transmission Date: 20130627
  Serious: Yes (Hospitalization)
  Sender: FDA-Public Use
  Company Number: None

PATIENT
  Age: 83 Year
  Sex: Female
  Weight: 62.5 kg

DRUGS (20)
  1. VANCOMYCIN [Suspect]
     Indication: PREOPERATIVE CARE
     Dosage: RECENT
     Route: 042
  2. METOPROLOL [Suspect]
     Indication: HYPERTENSION
     Dosage: RECENT
     Route: 042
  3. HYDRALAZINE [Suspect]
     Indication: HYPERTENSION
     Dosage: RECENT
     Route: 042
  4. CENTRUM SILVER [Concomitant]
  5. CRESTOR [Concomitant]
  6. SYNTHROID [Concomitant]
  7. CYMBALTA [Concomitant]
  8. COLACE [Concomitant]
  9. TYLENOL ARTHRITIS [Concomitant]
  10. ASPIRIN [Concomitant]
  11. PENNSAID [Concomitant]
  12. EXALGO [Concomitant]
  13. DILAUDID [Concomitant]
  14. BONIVA [Concomitant]
  15. LISINOPRIL [Concomitant]
  16. CARVEDILOL [Concomitant]
  17. OMEPRAZOLE [Concomitant]
  18. SENOKOT [Concomitant]
  19. VESICARE [Concomitant]
  20. SENSIPAR [Concomitant]

REACTIONS (1)
  - Angioedema [None]
